FAERS Safety Report 10183617 (Version 2)
Quarter: 2014Q2

REPORT INFORMATION
  Report Type: Spontaneous
  Country: US (occurrence: US)
  Receive Date: 20140520
  Receipt Date: 20140520
  Transmission Date: 20141212
  Serious: Yes (Hospitalization)
  Sender: FDA-Public Use
  Company Number: US-BANPHARM-20142674

PATIENT
  Age: 78 Year
  Sex: Male
  Weight: 90.72 kg

DRUGS (3)
  1. ALEVE LIQUID GELS 220 MG [Suspect]
     Indication: PAIN
     Dosage: 2 DF, QD,
     Route: 048
     Dates: start: 2004
  2. COUMADIN [Concomitant]
  3. BLOOD PRESSURE MEDICATION [Concomitant]

REACTIONS (4)
  - Gastric ulcer [Recovered/Resolved]
  - Rectal haemorrhage [Recovered/Resolved]
  - Faeces discoloured [Recovered/Resolved]
  - Incorrect drug administration duration [Unknown]
